FAERS Safety Report 4848828-8 (Version None)
Quarter: 2005Q4

REPORT INFORMATION
  Report Type: 
  Country: None (occurrence: None)
  Receive Date: 20051115
  Receipt Date: 20050804
  Transmission Date: 20060501
  Serious: Yes (Other)
  Sender: FDA-Public Use
  Company Number: 399925

PATIENT
  Age: 64 Year
  Sex: Female

DRUGS (3)
  1. PEGASYS [Suspect]
     Dosage: OTHER
     Route: 050
     Dates: start: 20050307
  2. COPEGUS [Suspect]
     Dosage: 800 MG DAILY  ORAL
     Route: 048
     Dates: start: 20050307
  3. PROCRIT [Concomitant]

REACTIONS (10)
  - COUGH [None]
  - DEPRESSION [None]
  - DYSPNOEA [None]
  - FATIGUE [None]
  - HAEMOGLOBIN DECREASED [None]
  - INCREASED UPPER AIRWAY SECRETION [None]
  - IRRITABILITY [None]
  - NASAL CONGESTION [None]
  - PRODUCTIVE COUGH [None]
  - WHITE BLOOD CELL COUNT DECREASED [None]
